FAERS Safety Report 20083404 (Version 1)
Quarter: 2021Q4

REPORT INFORMATION
  Report Type: Other
  Country: IT (occurrence: IT)
  Receive Date: 20211117
  Receipt Date: 20211117
  Transmission Date: 20220303
  Serious: Yes (Death, Other)
  Sender: FDA-Public Use
  Company Number: IT-CELLTRION HEALTHCARE HUNGARY KFT-2021IT014712

PATIENT

DRUGS (38)
  1. RITUXIMAB [Suspect]
     Active Substance: RITUXIMAB
     Indication: Diffuse large B-cell lymphoma
     Dosage: R-COMP SCHEME FOR SIX COURSES, EVERY 21 DAYS
     Route: 065
  2. RITUXIMAB [Suspect]
     Active Substance: RITUXIMAB
     Indication: Primary cardiac lymphoma
     Dosage: R-COMP SCHEME FOR SIX COURSES, EVERY 21 DAYS
     Route: 065
  3. RITUXIMAB [Suspect]
     Active Substance: RITUXIMAB
     Dosage: TWO ADMINISTRATIONS ALONE (SEVENTH)
     Route: 065
  4. RITUXIMAB [Suspect]
     Active Substance: RITUXIMAB
     Dosage: R-COMP SCHEME FOR SIX COURSES, EVERY 21 DAYS
     Route: 065
  5. RITUXIMAB [Suspect]
     Active Substance: RITUXIMAB
     Dosage: R-COMP SCHEME FOR SIX COURSES, EVERY 21 DAYS
     Route: 065
  6. RITUXIMAB [Suspect]
     Active Substance: RITUXIMAB
     Dosage: SINGLE COURSE OF DOSE ADAPTED MATRIX CHEMOTHERAPY
     Route: 065
  7. RITUXIMAB [Suspect]
     Active Substance: RITUXIMAB
     Dosage: R-COMP SCHEME FOR SIX COURSES, EVERY 21 DAYS
     Route: 065
  8. RITUXIMAB [Suspect]
     Active Substance: RITUXIMAB
     Dosage: R-COMP SCHEME FOR SIX COURSES, EVERY 21 DAYS
     Route: 065
  9. CYCLOPHOSPHAMIDE [Suspect]
     Active Substance: CYCLOPHOSPHAMIDE
     Indication: Diffuse large B-cell lymphoma
     Dosage: R-COMP SCHEME FOR SIX COURSES, EVERY 21 DAYS
     Route: 065
  10. CYCLOPHOSPHAMIDE [Suspect]
     Active Substance: CYCLOPHOSPHAMIDE
     Indication: Primary cardiac lymphoma
     Dosage: R-COMP SCHEME FOR SIX COURSES, EVERY 21 DAYS
     Route: 065
  11. CYCLOPHOSPHAMIDE [Suspect]
     Active Substance: CYCLOPHOSPHAMIDE
     Dosage: R-COMP SCHEME FOR SIX COURSES, EVERY 21 DAYS
     Route: 065
  12. CYCLOPHOSPHAMIDE [Suspect]
     Active Substance: CYCLOPHOSPHAMIDE
     Dosage: R-COMP SCHEME FOR SIX COURSES, EVERY 21 DAYS
     Route: 065
  13. CYCLOPHOSPHAMIDE [Suspect]
     Active Substance: CYCLOPHOSPHAMIDE
     Dosage: R-COMP SCHEME FOR SIX COURSES, EVERY 21 DAYS
     Route: 065
  14. CYCLOPHOSPHAMIDE [Suspect]
     Active Substance: CYCLOPHOSPHAMIDE
     Dosage: R-COMP SCHEME FOR SIX COURSES, EVERY 21 DAYS
     Route: 065
  15. VINCRISTINE [Suspect]
     Active Substance: VINCRISTINE
     Indication: Diffuse large B-cell lymphoma
     Dosage: R-COMP SCHEME FOR SIX COURSES, EVERY 21 DAYS
     Route: 065
  16. VINCRISTINE [Suspect]
     Active Substance: VINCRISTINE
     Indication: Primary cardiac lymphoma
     Dosage: R-COMP SCHEME FOR SIX COURSES, EVERY 21 DAYS
     Route: 065
  17. VINCRISTINE [Suspect]
     Active Substance: VINCRISTINE
     Dosage: R-COMP SCHEME FOR SIX COURSES, EVERY 21 DAYS
     Route: 065
  18. VINCRISTINE [Suspect]
     Active Substance: VINCRISTINE
     Dosage: R-COMP SCHEME FOR SIX COURSES, EVERY 21 DAYS
     Route: 065
  19. VINCRISTINE [Suspect]
     Active Substance: VINCRISTINE
     Dosage: R-COMP SCHEME FOR SIX COURSES, EVERY 21 DAYS
     Route: 065
  20. VINCRISTINE [Suspect]
     Active Substance: VINCRISTINE
     Dosage: R-COMP SCHEME FOR SIX COURSES, EVERY 21 DAYS
     Route: 065
  21. PREDNISONE [Suspect]
     Active Substance: PREDNISONE
     Indication: Primary cardiac lymphoma
     Dosage: R-COMP SCHEME FOR SIX COURSES, EVERY 21 DAYS
     Route: 065
  22. PREDNISONE [Suspect]
     Active Substance: PREDNISONE
     Indication: Diffuse large B-cell lymphoma
     Dosage: R-COMP SCHEME FOR SIX COURSES, EVERY 21 DAYS
     Route: 065
  23. PREDNISONE [Suspect]
     Active Substance: PREDNISONE
     Dosage: R-COMP SCHEME FOR SIX COURSES, EVERY 21 DAYS
     Route: 065
  24. PREDNISONE [Suspect]
     Active Substance: PREDNISONE
     Dosage: R-COMP SCHEME FOR SIX COURSES, EVERY 21 DAYS
     Route: 065
  25. PREDNISONE [Suspect]
     Active Substance: PREDNISONE
     Dosage: R-COMP SCHEME FOR SIX COURSES, EVERY 21 DAYS
     Route: 065
  26. PREDNISONE [Suspect]
     Active Substance: PREDNISONE
     Dosage: R-COMP SCHEME FOR SIX COURSES, EVERY 21 DAYS
     Route: 065
  27. CYTARABINE [Suspect]
     Active Substance: CYTARABINE
     Indication: Primary cardiac lymphoma
     Dosage: SINGLE COURSE OF DOSE ADAPTED MATRIX CHEMOTHERAPY
     Route: 065
  28. CYTARABINE [Suspect]
     Active Substance: CYTARABINE
     Indication: Diffuse large B-cell lymphoma
  29. DOXORUBICIN HYDROCHLORIDE [Suspect]
     Active Substance: DOXORUBICIN HYDROCHLORIDE
     Indication: Diffuse large B-cell lymphoma
     Dosage: R-COMP SCHEME FOR SIX COURSES, EVERY 21 DAYS
     Route: 065
  30. DOXORUBICIN HYDROCHLORIDE [Suspect]
     Active Substance: DOXORUBICIN HYDROCHLORIDE
     Indication: Primary cardiac lymphoma
     Dosage: R-COMP SCHEME FOR SIX COURSES, EVERY 21 DAYS
     Route: 065
  31. DOXORUBICIN HYDROCHLORIDE [Suspect]
     Active Substance: DOXORUBICIN HYDROCHLORIDE
     Dosage: R-COMP SCHEME FOR SIX COURSES, EVERY 21 DAYS
     Route: 065
  32. DOXORUBICIN HYDROCHLORIDE [Suspect]
     Active Substance: DOXORUBICIN HYDROCHLORIDE
     Dosage: R-COMP SCHEME FOR SIX COURSES, EVERY 21 DAYS
     Route: 065
  33. DOXORUBICIN HYDROCHLORIDE [Suspect]
     Active Substance: DOXORUBICIN HYDROCHLORIDE
     Dosage: R-COMP SCHEME FOR SIX COURSES, EVERY 21 DAYS
     Route: 065
  34. DOXORUBICIN HYDROCHLORIDE [Suspect]
     Active Substance: DOXORUBICIN HYDROCHLORIDE
     Dosage: R-COMP SCHEME FOR SIX COURSES, EVERY 21 DAYS
     Route: 065
  35. METHOTREXATE [Suspect]
     Active Substance: METHOTREXATE
     Indication: Primary cardiac lymphoma
     Dosage: SINGLE COURSE OF DOSE ADAPTED MATRIX CHEMOTHERAPY
     Route: 065
  36. METHOTREXATE [Suspect]
     Active Substance: METHOTREXATE
     Indication: Diffuse large B-cell lymphoma
  37. THIOTEPA [Suspect]
     Active Substance: THIOTEPA
     Indication: Diffuse large B-cell lymphoma
     Dosage: SINGLE COURSE OF DOSE ADAPTED MATRIX CHEMOTHERAPY
     Route: 065
  38. THIOTEPA [Suspect]
     Active Substance: THIOTEPA
     Indication: Primary cardiac lymphoma

REACTIONS (5)
  - Acute kidney injury [Unknown]
  - Neoplasm recurrence [Unknown]
  - Central nervous system lymphoma [Unknown]
  - Drug intolerance [Unknown]
  - Disease progression [Fatal]
